FAERS Safety Report 19871504 (Version 1)
Quarter: 2021Q3

REPORT INFORMATION
  Report Type: Spontaneous
  Country: US (occurrence: US)
  Receive Date: 20210923
  Receipt Date: 20210923
  Transmission Date: 20211014
  Serious: No
  Sender: FDA-Public Use
  Company Number: US-JNJFOC-20210939741

PATIENT

DRUGS (2)
  1. RILPIVIRINE [Suspect]
     Active Substance: RILPIVIRINE
     Indication: HIV INFECTION
     Dosage: UNK,600 MG/3 ML (200 MG/ML) CABOTEGRAVIR AND SINGLE?DOSE VIAL OF 900 MG/3 ML (300 MG/ML) RILPIVIRINE
     Route: 065
  2. CABOTEGRAVIR [Suspect]
     Active Substance: CABOTEGRAVIR
     Indication: HIV INFECTION
     Dosage: UNK,600 MG/3 ML (200 MG/ML) CABOTEGRAVIR AND SINGLE?DOSE VIAL OF 900 MG/3 ML (300 MG/ML) RILPIVIRINE
     Route: 065

REACTIONS (1)
  - Product storage error [Unknown]
